FAERS Safety Report 13371908 (Version 3)
Quarter: 2017Q2

REPORT INFORMATION
  Report Type: Spontaneous
  Country: US (occurrence: US)
  Receive Date: 20170326
  Receipt Date: 20170406
  Transmission Date: 20170830
  Serious: No
  Sender: FDA-Public Use
  Company Number: US-WARNER CHILCOTT-2016-000369

PATIENT
  Sex: Female

DRUGS (1)
  1. ESTRACE [Suspect]
     Active Substance: ESTRADIOL
     Indication: PRODUCT USED FOR UNKNOWN INDICATION
     Dosage: UNKNOWN
     Route: 067

REACTIONS (5)
  - Vulvovaginal swelling [Unknown]
  - Vaginal discharge [Unknown]
  - Vulvovaginal pain [Unknown]
  - Vulvovaginal discomfort [Unknown]
  - Vulvovaginal inflammation [Unknown]
